FAERS Safety Report 5318356-4 (Version None)
Quarter: 2007Q2

REPORT INFORMATION
  Report Type: 
  Country: None (occurrence: None)
  Receive Date: 20070507
  Receipt Date: 20070424
  Transmission Date: 20071010
  Serious: Yes (Hospitalization, Other)
  Sender: FDA-Public Use
  Company Number: US-SHR-US-2006-014623

PATIENT
  Age: 60 Year
  Sex: Male
  Weight: 104.76 kg

DRUGS (8)
  1. BETASERON [Suspect]
     Indication: PROGRESSIVE MULTIPLE SCLEROSIS
     Dosage: 8 MIU, 2X/WEEK
     Route: 058
     Dates: start: 20060727
  2. BETASERON [Suspect]
     Dosage: 8 MIU, EVERY 2D
     Route: 058
     Dates: start: 20040820, end: 20060602
  3. SULINDAC [Suspect]
     Dates: start: 20060501
  4. LISINOPRIL [Concomitant]
     Dosage: 40 MG, 1X/DAY
     Route: 048
  5. BACLOFEN [Concomitant]
     Indication: MUSCLE SPASMS
     Dosage: 10 MG, BED T.
     Route: 048
  6. BACLOFEN [Concomitant]
     Dosage: 10 MG, 3X/DAY
     Route: 048
  7. WELLBUTRIN [Concomitant]
     Indication: DEPRESSION
     Dosage: 150 MG, 2X/DAY
     Route: 048
  8. NORVASC [Concomitant]

REACTIONS (20)
  - AUTOIMMUNE THROMBOCYTOPENIA [None]
  - CONTUSION [None]
  - DEEP VEIN THROMBOSIS [None]
  - DEHYDRATION [None]
  - DEPRESSION [None]
  - ERECTILE DYSFUNCTION [None]
  - HEADACHE [None]
  - HELICOBACTER PYLORI IDENTIFICATION TEST POSITIVE [None]
  - IDIOPATHIC THROMBOCYTOPENIC PURPURA [None]
  - INFLUENZA LIKE ILLNESS [None]
  - INJECTION SITE BRUISING [None]
  - INJECTION SITE REACTION [None]
  - MUSCLE ATROPHY [None]
  - MUSCULOSKELETAL DISORDER [None]
  - OEDEMA PERIPHERAL [None]
  - PLATELET COUNT DECREASED [None]
  - SENSORY LOSS [None]
  - SPEECH DISORDER [None]
  - SUBARACHNOID HAEMORRHAGE [None]
  - SUBDURAL HAEMATOMA [None]
